FAERS Safety Report 6645354-0 (Version None)
Quarter: 2010Q1

REPORT INFORMATION
  Report Type: 
  Country: None (occurrence: None)
  Receive Date: 20100322
  Receipt Date: 20100315
  Transmission Date: 20100710
  Serious: Yes (Hospitalization, Other)
  Sender: FDA-Public Use
  Company Number: US-ROCHE-687974

PATIENT
  Sex: Male

DRUGS (17)
  1. PEG-INTERFERON A-2A (RO 25-8310) [Suspect]
     Indication: HEPATITIS C
     Dosage: FORM: PRE-FILLED SYRINGE; PATIENT IN WEEK 5 OF TREATMENT
     Route: 065
     Dates: start: 20090920
  2. PEG-INTERFERON A-2A (RO 25-8310) [Suspect]
     Dosage: PATIENT IN WEEK 13 OF TREATMENT
     Route: 065
  3. PEG-INTERFERON A-2A (RO 25-8310) [Suspect]
     Dosage: PATIENT IN WEEK 22 OF TREATMENT
     Route: 065
  4. RIBASPHERE [Suspect]
     Indication: HEPATITIS C
     Dosage: NOTE: DIVIDED DOSES; PATIENT IN WEEK 22 OF TREATMENT
     Route: 065
     Dates: start: 20090920
  5. LYRICA [Concomitant]
  6. FLUTICASONE PROPIONATE [Concomitant]
  7. ADVAIR DISKUS 100/50 [Concomitant]
  8. SKELAXIN [Concomitant]
  9. VITAMIN B-12 [Concomitant]
  10. COMBIVENT [Concomitant]
  11. OXYCODONE HCL [Concomitant]
  12. LAMOTRIGINE [Concomitant]
     Dosage: FREQUENCY: AT BEDTIME
  13. MORPHINE [Concomitant]
  14. TRAZODONE HCL [Concomitant]
     Dosage: FREQUENCY: AT BED TIME
  15. LISINOPRIL [Concomitant]
  16. PROMETHAZINE [Concomitant]
  17. FENTANYL-75 [Concomitant]

REACTIONS (4)
  - INFECTION [None]
  - OBSTRUCTION [None]
  - OEDEMA PERIPHERAL [None]
  - WHITE BLOOD CELL COUNT DECREASED [None]
